FAERS Safety Report 5789004-4 (Version None)
Quarter: 2008Q2

REPORT INFORMATION
  Report Type: 
  Country: None (occurrence: None)
  Receive Date: 20080626
  Receipt Date: 20080121
  Transmission Date: 20081010
  Serious: No
  Sender: FDA-Public Use
  Company Number: US-ASTRAZENECA-2007UW28448

PATIENT
  Age: 10 Month
  Sex: Male
  Weight: 8.2 kg

DRUGS (7)
  1. PULMICORT RESPULES [Suspect]
     Indication: ASTHMA
     Route: 055
     Dates: start: 20070806, end: 20071201
  2. PULMICORT RESPULES [Suspect]
     Indication: WHEEZING
     Route: 055
     Dates: start: 20070806, end: 20071201
  3. PULMICORT RESPULES [Suspect]
     Indication: CROUP INFECTIOUS
     Route: 055
     Dates: start: 20070806, end: 20071201
  4. PREVACID [Concomitant]
     Indication: GASTROOESOPHAGEAL REFLUX DISEASE
     Route: 048
     Dates: start: 20070501
  5. TYLENOL [Concomitant]
     Route: 048
     Dates: start: 20070401
  6. MOTRIN [Concomitant]
     Route: 048
     Dates: start: 20070801
  7. XOPENEX [Concomitant]
     Dates: start: 20070301

REACTIONS (1)
  - INSOMNIA [None]
